FAERS Safety Report 8709646 (Version 6)
Quarter: 2013Q3

REPORT INFORMATION
  Report Type: Spontaneous
  Country: CN (occurrence: CN)
  Receive Date: 20120806
  Receipt Date: 20130805
  Transmission Date: 20140515
  Serious: Yes (Hospitalization)
  Sender: FDA-Public Use
  Company Number: CN-GLAXOSMITHKLINE-B0820292A

PATIENT
  Age: 44 Year
  Sex: Male
  Weight: 45 kg

DRUGS (4)
  1. LAMICTAL [Suspect]
     Indication: EPILEPSY
     Route: 048
     Dates: start: 20120405, end: 20120512
  2. SODIUM VALPROATE [Concomitant]
     Indication: EPILEPSY
     Dosage: 1TAB TWICE PER DAY
     Route: 048
     Dates: start: 20120405
  3. KEPPRA [Concomitant]
     Indication: EPILEPSY
  4. CHINESE MEDICATION [Concomitant]
     Indication: EPILEPSY
     Route: 048

REACTIONS (20)
  - Anaphylactic reaction [Recovering/Resolving]
  - Rash [Recovered/Resolved]
  - Dermatitis exfoliative [Recovering/Resolving]
  - Generalised oedema [Recovering/Resolving]
  - Drug hypersensitivity [Recovering/Resolving]
  - Dermatitis allergic [Recovered/Resolved]
  - Erythema [Unknown]
  - Lymphadenopathy [Unknown]
  - Rash erythematous [Unknown]
  - Drug eruption [Unknown]
  - Blister [Unknown]
  - Swelling [Unknown]
  - Condition aggravated [Unknown]
  - Rash generalised [Recovered/Resolved]
  - Eczema [Recovered/Resolved]
  - Papule [Unknown]
  - Hepatic steatosis [Unknown]
  - Renal cyst [Unknown]
  - Dermatitis atopic [Recovered/Resolved]
  - Arthralgia [Unknown]
